FAERS Safety Report 4852388-5 (Version None)
Quarter: 2005Q4

REPORT INFORMATION
  Report Type: 
  Country: None (occurrence: None)
  Receive Date: 20051129
  Receipt Date: 20050805
  Transmission Date: 20060501
  Serious: No
  Sender: FDA-Public Use
  Company Number: WAES 0508USA01395

PATIENT
  Age: 45 Year
  Sex: Male
  Weight: 77.1115 kg

DRUGS (5)
  1. ZETIA [Suspect]
     Indication: BLOOD CHOLESTEROL INCREASED
     Dosage: 10 MG/DAILY/PO
     Route: 048
     Dates: start: 20050301, end: 20050101
  2. ZETIA [Suspect]
     Indication: LIPIDS INCREASED
     Dosage: 10 MG/DAILY/PO
     Route: 048
     Dates: start: 20050301, end: 20050101
  3. LIPITOR [Concomitant]
  4. TOPROL-XL [Concomitant]
  5. TRICOR [Concomitant]

REACTIONS (2)
  - C-REACTIVE PROTEIN INCREASED [None]
  - MYALGIA [None]
